FAERS Safety Report 25180528 (Version 1)
Quarter: 2025Q2

REPORT INFORMATION
  Report Type: Spontaneous
  Country: US (occurrence: None)
  Receive Date: 20250409
  Receipt Date: 20250409
  Transmission Date: 20250716
  Serious: Yes (Life-Threatening, Hospitalization)
  Sender: FDA-CTU
  Company Number: None

PATIENT
  Age: 62 Year
  Sex: Female
  Weight: 74.6 kg

DRUGS (3)
  1. LEVAQUIN [Suspect]
     Active Substance: LEVOFLOXACIN
     Indication: Pneumonia
     Route: 042
  2. MAGNESIUM SULFATE [Concomitant]
     Active Substance: MAGNESIUM SULFATE
  3. NS 0.9% 1000ML bag xl [Concomitant]

REACTIONS (5)
  - Infusion related reaction [None]
  - Cyanosis [None]
  - Hypoxia [None]
  - Stridor [None]
  - Loss of consciousness [None]

NARRATIVE: CASE EVENT DATE: 20250327
